FAERS Safety Report 24254849 (Version 3)
Quarter: 2024Q3

REPORT INFORMATION
  Report Type: Spontaneous
  Country: CL (occurrence: CL)
  Receive Date: 20240827
  Receipt Date: 20240912
  Transmission Date: 20241017
  Serious: Yes (Other)
  Sender: MERCK KGAA
  Company Number: CL-Merck Healthcare KGaA-2024044147

PATIENT
  Age: 64 Year
  Sex: Female
  Weight: 64 kg

DRUGS (1)
  1. EUTHYROX [Suspect]
     Active Substance: LEVOTHYROXINE SODIUM
     Indication: Hypothyroidism
     Dosage: IN THE MORNING ON AN EMPTY STOMACH
     Route: 048
     Dates: start: 202303, end: 20240830

REACTIONS (7)
  - Neuroendocrine carcinoma of the skin [Recovered/Resolved]
  - Lymphadenopathy [Recovered/Resolved]
  - Hepatic cyst [Recovered/Resolved]
  - Gallbladder disorder [Recovered/Resolved]
  - Atelectasis [Recovered/Resolved]
  - Varicose vein [Recovered/Resolved]
  - Hiatus hernia [Unknown]

NARRATIVE: CASE EVENT DATE: 20240603
